FAERS Safety Report 6867234-8 (Version None)
Quarter: 2010Q3

REPORT INFORMATION
  Report Type: 
  Country: None (occurrence: None)
  Receive Date: 20100722
  Receipt Date: 20100722
  Transmission Date: 20110219
  Serious: No
  Sender: FDA-Public Use
  Company Number: None

PATIENT
  Age: 55 Year
  Sex: Female
  Weight: 54.4316 kg

DRUGS (2)
  1. NABUMETONE [Suspect]
     Dosage: 1 TWICE DAILY
  2. CELEBREX [Suspect]
     Dosage: 1 ONCE DAILY

REACTIONS (3)
  - JOINT SWELLING [None]
  - RASH [None]
  - SWELLING FACE [None]
